FAERS Safety Report 25390713 (Version 1)
Quarter: 2025Q2

REPORT INFORMATION
  Report Type: Spontaneous
  Country: US (occurrence: None)
  Receive Date: 20250603
  Receipt Date: 20250603
  Transmission Date: 20250717
  Serious: No
  Sender: FDA-CTU
  Company Number: None

PATIENT
  Age: 51 Year
  Sex: Female
  Weight: 66.6 kg

DRUGS (4)
  1. MUPIROCIN [Suspect]
     Active Substance: MUPIROCIN
     Indication: Staphylococcal infection
     Dosage: OTHER QUANTITY : 22 GRAMS;?FREQUENCY : TWICE A DAY;?OTHER ROUTE : IN NOSTRILS OF NOSE;?
     Route: 050
     Dates: start: 20250531, end: 20250601
  2. SLYND [Concomitant]
     Active Substance: DROSPIRENONE
  3. Gapabentin [Concomitant]
  4. ZYRTEC [Concomitant]
     Active Substance: CETIRIZINE HYDROCHLORIDE

REACTIONS (9)
  - Hypersensitivity [None]
  - Skin burning sensation [None]
  - Pruritus [None]
  - Rhinalgia [None]
  - Nasal congestion [None]
  - Dizziness [None]
  - Headache [None]
  - Cough [None]
  - Diarrhoea [None]

NARRATIVE: CASE EVENT DATE: 20250531
